FAERS Safety Report 25192125 (Version 1)
Quarter: 2025Q2

REPORT INFORMATION
  Report Type: Spontaneous
  Country: US (occurrence: None)
  Receive Date: 20250412
  Receipt Date: 20250412
  Transmission Date: 20250716
  Serious: No
  Sender: FDA-CTU
  Company Number: None

PATIENT
  Age: 62 Year
  Sex: Female

DRUGS (19)
  1. COTELLIC [Suspect]
     Active Substance: COBIMETINIB FUMARATE
     Indication: Rosai-Dorfman syndrome
     Dosage: FREQUENCY : DAILY;?
     Route: 048
     Dates: start: 20241217
  2. ADVIL [Concomitant]
     Active Substance: IBUPROFEN
  3. ALBUTEROL [Concomitant]
     Active Substance: ALBUTEROL
  4. BACLOFEN [Suspect]
     Active Substance: BACLOFEN
  5. BISOPROLOL FUMARATE\HYDROCHLOROTHIAZIDE [Concomitant]
     Active Substance: BISOPROLOL FUMARATE\HYDROCHLOROTHIAZIDE
  6. BREZTRI AERO SPHERE INHALER [Concomitant]
  7. BUPROPION HYDROCHLORIDE [Concomitant]
     Active Substance: BUPROPION HYDROCHLORIDE
  8. CETIRIZINE [Concomitant]
     Active Substance: CETIRIZINE HYDROCHLORIDE
  9. CLOBETASOL [Concomitant]
     Active Substance: CLOBETASOL
  10. EMOLLIENT CRM [Concomitant]
  11. DULOXETINE [Concomitant]
     Active Substance: DULOXETINE
  12. MELOXICAM [Concomitant]
     Active Substance: MELOXICAM
  13. METAXALONE [Concomitant]
     Active Substance: METAXALONE
  14. METFORMIN [Concomitant]
     Active Substance: METFORMIN HYDROCHLORIDE
  15. OZEMPIC [Concomitant]
     Active Substance: SEMAGLUTIDE
  16. PRENATAL CHEWABLE GUMMIES [Concomitant]
  17. ROSUVASTATIN [Concomitant]
     Active Substance: ROSUVASTATIN
  18. TRAZODONE [Concomitant]
     Active Substance: TRAZODONE HYDROCHLORIDE
  19. TRIAMICINOLONE [Concomitant]

REACTIONS (5)
  - Blister [None]
  - Peripheral swelling [None]
  - Blister rupture [None]
  - Secretion discharge [None]
  - Haemorrhage [None]

NARRATIVE: CASE EVENT DATE: 20250301
